FAERS Safety Report 10954107 (Version 1)
Quarter: 2015Q1

REPORT INFORMATION
  Report Type: Spontaneous
  Country: CA (occurrence: CA)
  Receive Date: 20150325
  Receipt Date: 20150325
  Transmission Date: 20150721
  Serious: Yes (Other)
  Sender: FDA-Public Use
  Company Number: CA-TEVA-549920ACC

PATIENT
  Age: 48 Year
  Sex: Male

DRUGS (7)
  1. METFORMIN [Concomitant]
     Active Substance: METFORMIN HYDROCHLORIDE
     Dosage: UNKNOWN FORM STRENGTH
     Route: 065
  2. AMITRIPTYLINE [Concomitant]
     Active Substance: AMITRIPTYLINE
     Dosage: UNKNOWN FORM STRENGTH
     Route: 065
  3. BISACODYL. [Concomitant]
     Active Substance: BISACODYL
     Dosage: UNKNOWN FORM STRENGTH
     Route: 065
  4. CREON [Concomitant]
     Active Substance: PANCRELIPASE AMYLASE\PANCRELIPASE LIPASE\PANCRELIPASE PROTEASE
     Dosage: UNKNOWN FORM STRENGTH
     Route: 065
  5. GLICLAZIDE [Concomitant]
     Active Substance: GLICLAZIDE
     Dosage: UNKNOWN FORM STRENGTH
     Route: 065
  6. LANTUS [Concomitant]
     Active Substance: INSULIN GLARGINE
     Dosage: UNKNOWN FORM STRENGTH
     Route: 058
  7. NOVO-MORPHINE SR [Suspect]
     Active Substance: MORPHINE
     Indication: ABDOMINAL PAIN UPPER
     Dosage: 2400 MILLIGRAM DAILY;
     Route: 048

REACTIONS (6)
  - Dizziness [Unknown]
  - Rectal haemorrhage [Unknown]
  - Abdominal pain [Unknown]
  - Pain [Unknown]
  - Product substitution issue [Unknown]
  - Nausea [Unknown]
